FAERS Safety Report 18485756 (Version 1)
Quarter: 2020Q4

REPORT INFORMATION
  Report Type: Spontaneous
  Country: US (occurrence: US)
  Receive Date: 20201110
  Receipt Date: 20201110
  Transmission Date: 20210114
  Serious: Yes (Hospitalization)
  Sender: FDA-Public Use
  Company Number: US-PFIZER INC-2016577255

PATIENT
  Age: 66 Year
  Sex: Female

DRUGS (18)
  1. CENTRUM FOR WOMEN [Concomitant]
     Active Substance: VITAMINS
     Dosage: 400 UG, DAILY (WITH FOOD)
     Route: 048
     Dates: start: 20160912
  2. DIFLUCAN [Concomitant]
     Active Substance: FLUCONAZOLE
     Dosage: 150 MG, 1X/DAY
     Route: 048
     Dates: start: 20160909
  3. BIOTIN [Concomitant]
     Active Substance: BIOTIN
     Dosage: 5000 UG, 2X/DAY
     Route: 048
     Dates: start: 20161118
  4. IBUPROFEN. [Concomitant]
     Active Substance: IBUPROFEN
     Dosage: 600 MG, 4X/DAY (EVERY 6H WITH FOOD)
     Route: 048
     Dates: start: 20161010
  5. TESTOSTERONE. [Concomitant]
     Active Substance: TESTOSTERONE
     Dosage: APPLY 40MG/1MCG TOPICALLY TO INNER THIGH TAKING AS DIRECTED QAM (EVERY MORNING)
     Route: 061
     Dates: start: 20161206
  6. AMITIZA [Concomitant]
     Active Substance: LUBIPROSTONE
     Dosage: 24 UG, 2X/DAY (TAKE WITH FOOD AND WATER)
     Route: 048
     Dates: start: 20161118
  7. NORCO [Concomitant]
     Active Substance: ACETAMINOPHEN\HYDROCODONE BITARTRATE
     Indication: PAIN
     Dosage: 1 DF, AS NEEDED (TAKE EVERY 6 HOUR AS NEEDED FOR PAIN)
     Route: 048
     Dates: start: 20150706
  8. CALCIUM + VITAMIN D3 [Concomitant]
     Active Substance: CALCIUM CARBONATE\CHOLECALCIFEROL
     Dosage: 400 IU, DAILY
     Route: 048
     Dates: start: 20161118
  9. MOBIC [Concomitant]
     Active Substance: MELOXICAM
     Dosage: 7.5 MG, DAILY
     Route: 048
     Dates: start: 20160923
  10. DILTIAZEM CD [Concomitant]
     Active Substance: DILTIAZEM
     Dosage: 180 MG, DAILY
     Route: 048
     Dates: start: 20160916
  11. FIORICET [Concomitant]
     Active Substance: ACETAMINOPHEN\BUTALBITAL\CAFFEINE
     Dosage: 1 DF, AS NEEDED (TAKE 1 CAPSULE EVERY 4 HOURS AS NEEDED NOT BE EXCEED 6 CAPSULE PER 24 HRS)
     Route: 048
     Dates: start: 20161010
  12. VITAMIN C [Concomitant]
     Active Substance: ASCORBIC ACID
     Dosage: TAKE 1-2, DAILY
     Route: 048
     Dates: start: 20161206
  13. ZOMIG [Concomitant]
     Active Substance: ZOLMITRIPTAN
     Indication: HEADACHE
     Dosage: 5 MG, ONCE, IF HEADACHE RETURNS, REPEAT AFTER 2 HOURS, NOT TO EXCEED 10MG WITHIN 24 HOURS
     Route: 048
     Dates: start: 20161115
  14. PREMARIN [Suspect]
     Active Substance: ESTROGENS, CONJUGATED
     Dosage: 1.25 MG, DAILY
     Route: 048
     Dates: start: 20161206
  15. ASPIRIN [ACETYLSALICYLIC ACID] [Concomitant]
     Active Substance: ASPIRIN
     Dosage: 81 MG, DAILY (TAKE 1 TABLET BY ORAL ROUTE EVERY DAY)
     Route: 048
     Dates: start: 20161118
  16. CLONAZEPAM. [Concomitant]
     Active Substance: CLONAZEPAM
     Dosage: 0.5 MG, 3X/DAY
     Route: 048
     Dates: start: 20160531
  17. CYCLOBENZAPRINE. [Concomitant]
     Active Substance: CYCLOBENZAPRINE
     Dosage: 10 MG, 3X/DAY
     Route: 048
     Dates: start: 20160923
  18. DILTIAZEM XR [Concomitant]
     Active Substance: DILTIAZEM
     Dosage: 180 MG, DAILY
     Route: 048
     Dates: start: 20150324

REACTIONS (3)
  - Diarrhoea [Unknown]
  - Decreased appetite [Unknown]
  - Abdominal pain upper [Unknown]
